FAERS Safety Report 8482725-4 (Version None)
Quarter: 2012Q3

REPORT INFORMATION
  Report Type: 
  Country: None (occurrence: None)
  Receive Date: 20120702
  Receipt Date: 20120625
  Transmission Date: 20120928
  Serious: Yes (Hospitalization)
  Sender: FDA-Public Use
  Company Number: US-JNJFOC-20120521477

PATIENT
  Sex: Female
  Weight: 79.5 kg

DRUGS (8)
  1. XARELTO [Suspect]
     Indication: THROMBOSIS PROPHYLAXIS
     Route: 048
     Dates: start: 20120511
  2. HYDROCHLOROTHIAZIDE [Concomitant]
  3. LOVASTATIN [Concomitant]
  4. LOVENOX [Concomitant]
  5. PRILOSEC [Concomitant]
  6. CLONIDINE [Concomitant]
  7. ASPIRIN [Suspect]
     Indication: ILL-DEFINED DISORDER
  8. LORTAB [Concomitant]

REACTIONS (2)
  - PERFORATED ULCER [None]
  - URINARY RETENTION [None]
